FAERS Safety Report 25684518 (Version 1)
Quarter: 2025Q3

REPORT INFORMATION
  Report Type: Spontaneous
  Country: US (occurrence: US)
  Receive Date: 20250815
  Receipt Date: 20250815
  Transmission Date: 20251020
  Serious: No
  Sender: VERRICA PHARMACEUTICALS
  Company Number: US-VERRICA PHARMACEUTICALS INC.-2025VER000014

PATIENT

DRUGS (1)
  1. YCANTH [Suspect]
     Active Substance: CANTHARIDIN
     Indication: Product used for unknown indication
     Route: 061

REACTIONS (1)
  - Skin disorder [Unknown]
